FAERS Safety Report 4585524-9 (Version None)
Quarter: 2005Q1

REPORT INFORMATION
  Report Type: 
  Country: None (occurrence: None)
  Receive Date: 20050214
  Receipt Date: 20050202
  Transmission Date: 20050727
  Serious: Yes (Death)
  Sender: FDA-Public Use
  Company Number: 2005025023

PATIENT
  Age: 9 Month
  Sex: Male

DRUGS (6)
  1. PSEUDOEPHEDRINE HCL [Suspect]
     Dosage: ORAL
     Route: 048
  2. DEXTROMETHORPHAN (DEXTROMETHORPAN) [Concomitant]
     Dosage: ORAL
     Route: 048
  3. PARACETAMOL (PARACETAMOL) (PARACETAMOL) [Suspect]
     Dosage: ORAL
     Route: 048
  4. MOTRIN [Suspect]
     Dosage: 3/4 DROPPERFUL, ORAL
     Route: 048
  5. CHLORPHENAMINE (CHLORPHENAMINE) [Suspect]
     Dosage: ORAL
     Route: 048
  6. PHENYLPROPANOLAMINE HCL [Suspect]
     Dosage: ORAL
     Route: 048

REACTIONS (16)
  - BLOOD GLUCOSE DECREASED [None]
  - BLOOD PH DECREASED [None]
  - BLOOD POTASSIUM INCREASED [None]
  - BLOOD SODIUM INCREASED [None]
  - BODY TEMPERATURE DECREASED [None]
  - CARDIO-RESPIRATORY ARREST [None]
  - CSF WHITE BLOOD CELL COUNT POSITIVE [None]
  - DRUG TOXICITY [None]
  - IMMOBILE [None]
  - INSOMNIA [None]
  - IRRITABILITY [None]
  - RESPIRATORY RATE INCREASED [None]
  - SCREAMING [None]
  - TACHYCARDIA [None]
  - TYMPANIC MEMBRANE HYPERAEMIA [None]
  - VOMITING [None]
